FAERS Safety Report 21062563 (Version 2)
Quarter: 2022Q3

REPORT INFORMATION
  Report Type: Report from Study
  Country: US (occurrence: None)
  Receive Date: 20220711
  Receipt Date: 20220901
  Transmission Date: 20221027
  Serious: Yes (Other)
  Sender: FDA-Public Use
  Company Number: US-Merck Healthcare KGaA-9266810

PATIENT
  Age: 57 Year
  Sex: Female

DRUGS (1)
  1. REBIF [Suspect]
     Active Substance: INTERFERON BETA-1A
     Indication: Multiple sclerosis
     Dosage: REBIF PREFILLED SYRINGE
     Route: 058
     Dates: start: 20071220, end: 20220630

REACTIONS (3)
  - Oligodendroglioma [Unknown]
  - Hypoaesthesia [Recovered/Resolved]
  - Vitamin B12 decreased [Unknown]

NARRATIVE: CASE EVENT DATE: 20100101
